FAERS Safety Report 15426142 (Version 1)
Quarter: 2018Q3

REPORT INFORMATION
  Report Type: Report from Study
  Country: US (occurrence: US)
  Receive Date: 20180925
  Receipt Date: 20180925
  Transmission Date: 20181010
  Serious: Yes (Other)
  Sender: FDA-Public Use
  Company Number: PHEH2015US002626

PATIENT
  Sex: Male

DRUGS (1)
  1. GILENYA [Suspect]
     Active Substance: FINGOLIMOD HYDROCHLORIDE
     Indication: MULTIPLE SCLEROSIS
     Dosage: 0.5 MG, UNK
     Route: 048

REACTIONS (13)
  - Post concussion syndrome [Unknown]
  - Multiple sclerosis relapse [Unknown]
  - Hypoacusis [Unknown]
  - Discomfort [Unknown]
  - Cranial nerve disorder [Unknown]
  - Paraesthesia [Unknown]
  - Hypoaesthesia [Unknown]
  - Muscular weakness [Unknown]
  - Demyelination [Unknown]
  - Spinal cord disorder [Unknown]
  - Muscle spasms [Unknown]
  - Facial pain [Unknown]
  - Tinnitus [Unknown]
